FAERS Safety Report 9473796 (Version 2)
Quarter: 2013Q3

REPORT INFORMATION
  Report Type: Spontaneous
  Country: US (occurrence: US)
  Receive Date: 20130823
  Receipt Date: 20130823
  Transmission Date: 20140515
  Serious: No
  Sender: FDA-Public Use
  Company Number: US-BRISTOL-MYERS SQUIBB COMPANY-16998916

PATIENT
  Age: 61 Year
  Sex: Male
  Weight: 72.56 kg

DRUGS (3)
  1. SPRYCEL [Suspect]
     Indication: CHRONIC MYELOID LEUKAEMIA
     Dosage: STOPPED ON 20AUG12,RESUMED ON 25SEP12 REDUCED DOSE 50MG
     Route: 048
     Dates: start: 201111
  2. ZYRTEC [Concomitant]
  3. SIMVASTATIN [Concomitant]

REACTIONS (2)
  - Pleural effusion [Not Recovered/Not Resolved]
  - Rash [Unknown]
